FAERS Safety Report 11122777 (Version 1)
Quarter: 2015Q2

REPORT INFORMATION
  Report Type: Spontaneous
  Country: US (occurrence: US)
  Receive Date: 20150519
  Receipt Date: 20150519
  Transmission Date: 20150821
  Serious: No
  Sender: FDA-Public Use
  Company Number: US-PFIZER INC-2015163548

PATIENT
  Age: 55 Year
  Sex: Female
  Weight: 64 kg

DRUGS (1)
  1. CLEOCIN [Suspect]
     Active Substance: CLINDAMYCIN PHOSPHATE
     Indication: BACTERIAL VAGINOSIS
     Dosage: UNK, 1X/DAY
     Dates: start: 20150507

REACTIONS (4)
  - Pain [Unknown]
  - Product quality issue [Unknown]
  - Burning sensation [Unknown]
  - Drug ineffective [Unknown]

NARRATIVE: CASE EVENT DATE: 20150507
